FAERS Safety Report 5827274-4 (Version None)
Quarter: 2008Q3

REPORT INFORMATION
  Report Type: 
  Country: None (occurrence: None)
  Receive Date: 20080730
  Receipt Date: 20080721
  Transmission Date: 20090109
  Serious: No
  Sender: FDA-Public Use
  Company Number: GB-ROCHE-567774

PATIENT
  Sex: Female
  Weight: 57 kg

DRUGS (1)
  1. ISOTRETINOIN [Suspect]
     Indication: DRUG USE FOR UNKNOWN INDICATION
     Route: 065
     Dates: start: 20080415, end: 20080515

REACTIONS (2)
  - NO ADVERSE EVENT [None]
  - PREGNANCY [None]
